FAERS Safety Report 19463635 (Version 4)
Quarter: 2024Q1

REPORT INFORMATION
  Report Type: Spontaneous
  Country: US (occurrence: US)
  Receive Date: 20210625
  Receipt Date: 20240123
  Transmission Date: 20240410
  Serious: No
  Sender: FDA-Public Use
  Company Number: US-PFIZER INC-2021608215

PATIENT
  Age: 62 Year
  Sex: Female

DRUGS (1)
  1. ETANERCEPT [Suspect]
     Active Substance: ETANERCEPT
     Indication: Product used for unknown indication
     Dosage: UNK
     Route: 065

REACTIONS (5)
  - Drug hypersensitivity [Unknown]
  - Pain in extremity [Unknown]
  - Arthralgia [Unknown]
  - Repetitive strain injury [Unknown]
  - Sensitivity to weather change [Unknown]
